FAERS Safety Report 4870059-6 (Version None)
Quarter: 2005Q4

REPORT INFORMATION
  Report Type: 
  Country: None (occurrence: None)
  Receive Date: 20051223
  Receipt Date: 20051213
  Transmission Date: 20060501
  Serious: Yes (Other)
  Sender: FDA-Public Use
  Company Number: HQWYE994514DEC05

PATIENT
  Sex: Female

DRUGS (1)
  1. EFFEXOR XR [Suspect]
     Indication: DEPRESSION
     Dosage: 225 MG, ORAL
     Route: 048
     Dates: start: 20030101

REACTIONS (4)
  - ABNORMAL BEHAVIOUR [None]
  - COGNITIVE DISORDER [None]
  - DYSARTHRIA [None]
  - ROAD TRAFFIC ACCIDENT [None]
